FAERS Safety Report 11049104 (Version 1)
Quarter: 2015Q2

REPORT INFORMATION
  Report Type: Spontaneous
  Country: US (occurrence: US)
  Receive Date: 20150420
  Receipt Date: 20150420
  Transmission Date: 20150821
  Serious: No
  Sender: FDA-Public Use
  Company Number: US-B.I. PHARMACEUTICALS,INC./RIDGEFIELD-2015-BI-18758BP

PATIENT
  Age: 62 Year
  Sex: Male
  Weight: 109 kg

DRUGS (7)
  1. VERAPAMIL [Concomitant]
     Active Substance: VERAPAMIL HYDROCHLORIDE
     Dosage: (CAPSULE) STRENGTH: 140 MG; DAILY DOSE: 260 MG
     Route: 048
     Dates: start: 2006
  2. DALIRESP [Concomitant]
     Active Substance: ROFLUMILAST
     Indication: CHRONIC OBSTRUCTIVE PULMONARY DISEASE
     Dosage: 500 MG
     Route: 055
     Dates: start: 2010
  3. SPIRIVA [Suspect]
     Active Substance: TIOTROPIUM BROMIDE MONOHYDRATE
     Indication: CHRONIC OBSTRUCTIVE PULMONARY DISEASE
     Dosage: 18 MCG
     Route: 055
     Dates: start: 2005
  4. MUCINEX [Concomitant]
     Active Substance: GUAIFENESIN
     Indication: PRODUCT USED FOR UNKNOWN INDICATION
     Route: 065
  5. DUONEB [Concomitant]
     Active Substance: ALBUTEROL SULFATE\IPRATROPIUM BROMIDE
     Indication: CHRONIC OBSTRUCTIVE PULMONARY DISEASE
     Route: 055
  6. VERAPAMIL [Concomitant]
     Active Substance: VERAPAMIL HYDROCHLORIDE
     Indication: ATRIAL FIBRILLATION
     Route: 048
     Dates: start: 2006
  7. PULMICORT TURBUHALER [Concomitant]
     Active Substance: BUDESONIDE
     Indication: CHRONIC OBSTRUCTIVE PULMONARY DISEASE
     Dosage: STRENGTH: 1 VIAL; DAILY DOSE: 2 VIALS
     Route: 055
     Dates: start: 2011

REACTIONS (4)
  - Chest pain [Recovered/Resolved]
  - Dyspnoea [Not Recovered/Not Resolved]
  - Gastroenteritis viral [Recovered/Resolved]
  - Pneumonia [Recovered/Resolved]

NARRATIVE: CASE EVENT DATE: 201502
